FAERS Safety Report 14390985 (Version 3)
Quarter: 2018Q1

REPORT INFORMATION
  Report Type: Spontaneous
  Country: DE (occurrence: DE)
  Receive Date: 20180116
  Receipt Date: 20180219
  Transmission Date: 20180509
  Serious: Yes (Other)
  Sender: FDA-Public Use
  Company Number: DE-HETERO CORPORATE-HET2018DE00030

PATIENT
  Age: 18 Year
  Sex: Male

DRUGS (3)
  1. LEVETIRACETAM. [Suspect]
     Active Substance: LEVETIRACETAM
     Indication: EPILEPSY
     Dosage: 1500 MG, QD(750 MG, 2X/DAY (BID) )
     Route: 065
  2. TOPIRAMATE. [Concomitant]
     Active Substance: TOPIRAMATE
     Indication: EPILEPSY
     Route: 065
  3. LEVETIRACETAM. [Suspect]
     Active Substance: LEVETIRACETAM
     Dosage: 3000 MG, QD(1500 MG, 2X/DAY (BID) )
     Dates: end: 201704

REACTIONS (3)
  - Seizure [Unknown]
  - Fatigue [Unknown]
  - Listless [Unknown]
